FAERS Safety Report 8155239-9 (Version None)
Quarter: 2012Q1

REPORT INFORMATION
  Report Type: 
  Country: None (occurrence: None)
  Receive Date: 20120222
  Receipt Date: 20090521
  Transmission Date: 20120608
  Serious: No
  Sender: FDA-Public Use
  Company Number: US-BIOGENIDEC-2009BI015878

PATIENT
  Age: 61 Year
  Sex: Female

DRUGS (1)
  1. TYSABRI [Suspect]
     Indication: MULTIPLE SCLEROSIS
     Route: 042
     Dates: start: 20070829

REACTIONS (10)
  - MULTIPLE SCLEROSIS [None]
  - MUSCULOSKELETAL STIFFNESS [None]
  - FATIGUE [None]
  - DRUG EFFECT DECREASED [None]
  - GAIT DISTURBANCE [None]
  - CRYING [None]
  - LOSS OF CONTROL OF LEGS [None]
  - BALANCE DISORDER [None]
  - PERONEAL NERVE PALSY [None]
  - DYSPNOEA [None]
